FAERS Safety Report 20585410 (Version 1)
Quarter: 2022Q1

REPORT INFORMATION
  Report Type: Report from Study
  Country: US (occurrence: US)
  Receive Date: 20220312
  Receipt Date: 20220312
  Transmission Date: 20220423
  Serious: Yes (Other)
  Sender: FDA-Public Use
  Company Number: US-NOVARTISPH-NVSC2022US056192

PATIENT
  Age: 32 Year
  Sex: Female

DRUGS (1)
  1. GILENYA [Suspect]
     Active Substance: FINGOLIMOD HYDROCHLORIDE
     Indication: Multiple sclerosis
     Dosage: 0.5 MG, QD
     Route: 048
     Dates: start: 20220212

REACTIONS (5)
  - Extraocular muscle paresis [Unknown]
  - Diplopia [Unknown]
  - Eye movement disorder [Unknown]
  - Strabismus [Unknown]
  - Asthenopia [Unknown]

NARRATIVE: CASE EVENT DATE: 20220304
